FAERS Safety Report 8322559-4 (Version None)
Quarter: 2012Q2

REPORT INFORMATION
  Report Type: 
  Country: None (occurrence: None)
  Receive Date: 20120430
  Receipt Date: 20120425
  Transmission Date: 20120825
  Serious: No
  Sender: FDA-Public Use
  Company Number: US-BAYER-2012-041605

PATIENT
  Age: 57 Year
  Sex: Male

DRUGS (2)
  1. NEXAVAR [Suspect]
     Indication: RENAL CANCER
     Dosage: 400 MG,  (2X200 MG)
     Route: 048
  2. NEXAVAR [Suspect]
     Dosage: 800 MG, BID (2X 200 MG BID)
     Route: 048

REACTIONS (1)
  - NO ADVERSE EVENT [None]
